FAERS Safety Report 7403062-2 (Version None)
Quarter: 2011Q2

REPORT INFORMATION
  Report Type: 
  Country: None (occurrence: None)
  Receive Date: 20110408
  Receipt Date: 20110331
  Transmission Date: 20111010
  Serious: Yes (Hospitalization)
  Sender: FDA-Public Use
  Company Number: US-JNJFOC-20110401652

PATIENT
  Sex: Female

DRUGS (2)
  1. PEPCID COMPLETE [Suspect]
     Indication: PRODUCT USED FOR UNKNOWN INDICATION
  2. PEPCID COMPLETE [Suspect]

REACTIONS (1)
  - SKIN REACTION [None]
